FAERS Safety Report 14150708 (Version 1)
Quarter: 2017Q4

REPORT INFORMATION
  Report Type: Report from Study
  Country: NL (occurrence: NL)
  Receive Date: 20171102
  Receipt Date: 20171102
  Transmission Date: 20180321
  Serious: Yes (Hospitalization)
  Sender: FDA-Public Use
  Company Number: NL-UNICHEM LABORATORIES LIMITED-UCM201710-000269

PATIENT
  Age: 59 Year
  Sex: Female

DRUGS (5)
  1. BECLOMETASONE/FORMOTEROL [Concomitant]
  2. MOMETASONE [Concomitant]
     Active Substance: MOMETASONE
  3. TIOTROPIUM [Concomitant]
     Active Substance: TIOTROPIUM
  4. CICLESONIDE [Concomitant]
     Active Substance: CICLESONIDE
  5. MONTELUKAST [Suspect]
     Active Substance: MONTELUKAST SODIUM

REACTIONS (1)
  - Eosinophilic granulomatosis with polyangiitis [Recovering/Resolving]
